FAERS Safety Report 5559145-5 (Version None)
Quarter: 2007Q4

REPORT INFORMATION
  Report Type: 
  Country: None (occurrence: None)
  Receive Date: 20071214
  Receipt Date: 20070919
  Transmission Date: 20080405
  Serious: No
  Sender: FDA-Public Use
  Company Number: US-ABBOTT-07P-163-0417785-00

PATIENT
  Sex: Male
  Weight: 100 kg

DRUGS (5)
  1. HUMIRA [Suspect]
     Indication: PSORIATIC ARTHROPATHY
     Dosage: SYRINGE
     Route: 058
     Dates: start: 20060101, end: 20070101
  2. HUMIRA [Suspect]
     Dates: start: 20070101
  3. HUMIRA [Suspect]
     Dosage: SYRINGE
     Dates: start: 20060101
  4. MELOXICAM [Concomitant]
     Indication: DRUG USE FOR UNKNOWN INDICATION
  5. TIZANIDINE HCL [Concomitant]
     Indication: DRUG USE FOR UNKNOWN INDICATION

REACTIONS (2)
  - DRUG INEFFECTIVE [None]
  - INSOMNIA [None]
